FAERS Safety Report 8984669 (Version 3)
Quarter: 2014Q1

REPORT INFORMATION
  Report Type: Spontaneous
  Country: US (occurrence: US)
  Receive Date: 20121226
  Receipt Date: 20140107
  Transmission Date: 20141002
  Serious: Yes (Hospitalization, Other)
  Sender: FDA-Public Use
  Company Number: US-ASTRAZENECA-2012SE94585

PATIENT
  Age: 52 Year
  Sex: Female
  Weight: 79.4 kg

DRUGS (25)
  1. NEXIUM [Suspect]
     Indication: GASTROOESOPHAGEAL REFLUX DISEASE
     Route: 048
     Dates: start: 2004, end: 2011
  2. NEXIUM [Suspect]
     Indication: GASTROOESOPHAGEAL REFLUX DISEASE
     Route: 048
     Dates: start: 20090215
  3. NEXIUM [Suspect]
     Indication: GASTROOESOPHAGEAL REFLUX DISEASE
     Route: 048
     Dates: start: 20100614
  4. ROPINIROLE HCL [Concomitant]
     Dates: start: 20090119
  5. HYDROXYZINE HCL [Concomitant]
     Dates: start: 20090119
  6. HYDROCODONE-ACETAMINOPHEN [Concomitant]
     Dates: start: 20090125
  7. LIPITOR [Concomitant]
     Indication: BLOOD CHOLESTEROL INCREASED
     Dates: start: 20090208
  8. ZOLPIDEM TARTRATE [Concomitant]
     Dates: start: 20090208
  9. FLUOXETINE HCL [Concomitant]
     Dates: start: 20090215
  10. LORAZEPAM [Concomitant]
     Dates: start: 20090215
  11. RANITIDINE [Concomitant]
     Dates: start: 20090215
  12. VESICARE [Concomitant]
     Dates: start: 20090215
  13. HYDROCHLOROTHIAZIDE [Concomitant]
     Dates: start: 20090215
  14. LORATADINE [Concomitant]
     Dates: start: 20090216
  15. LEVOTHYROXINE [Concomitant]
     Dosage: 125 MCG
     Dates: start: 20090315
  16. TOVIAZ [Concomitant]
     Indication: BLADDER DISORDER
  17. FUROSEMIDE [Concomitant]
  18. METFORMIN [Concomitant]
     Indication: DIABETES MELLITUS
  19. AMLODIPINE [Concomitant]
     Indication: RASH
  20. ABILIFY [Concomitant]
     Indication: MOOD ALTERED
  21. TEMAZEPAM [Concomitant]
     Indication: SLEEP DISORDER
  22. EFFEXOR [Concomitant]
     Indication: DEPRESSION
  23. SINGULAIR [Concomitant]
     Indication: ASTHMA
  24. FLONASE [Concomitant]
     Indication: HYPERSENSITIVITY
  25. ACTOS [Concomitant]

REACTIONS (14)
  - Back disorder [Unknown]
  - Neoplasm malignant [Unknown]
  - Bone disorder [Unknown]
  - Osteoporosis [Unknown]
  - Rib fracture [Unknown]
  - Spinal osteoarthritis [Unknown]
  - Foot fracture [Unknown]
  - Meniscus injury [Unknown]
  - Multiple fractures [Unknown]
  - Carpal tunnel syndrome [Unknown]
  - Arthropathy [Unknown]
  - Fall [Unknown]
  - Arthritis [Unknown]
  - Osteopenia [Unknown]
